FAERS Safety Report 11074781 (Version 1)
Quarter: 2015Q2

REPORT INFORMATION
  Report Type: Spontaneous
  Country: US (occurrence: None)
  Receive Date: 20150428
  Receipt Date: 20150428
  Transmission Date: 20150821
  Serious: Yes (Other)
  Sender: FDA-Public Use
  Company Number: None

PATIENT
  Age: 44 Year
  Sex: Female
  Weight: 95.26 kg

DRUGS (1)
  1. DEXTROAMPHETAMINE [Suspect]
     Active Substance: DEXTROAMPHETAMINE
     Route: 048
     Dates: start: 20150420, end: 20150426

REACTIONS (5)
  - Crying [None]
  - Anger [None]
  - Depressed mood [None]
  - Headache [None]
  - Irritability [None]

NARRATIVE: CASE EVENT DATE: 20150420
